FAERS Safety Report 18188295 (Version 7)
Quarter: 2021Q2

REPORT INFORMATION
  Report Type: Spontaneous
  Country: US (occurrence: US)
  Receive Date: 20200824
  Receipt Date: 20210518
  Transmission Date: 20210717
  Serious: Yes (Other)
  Sender: FDA-Public Use
  Company Number: US-HORIZON-TEP-1502-2020

PATIENT

DRUGS (1)
  1. TEPEZZA [Suspect]
     Active Substance: TEPROTUMUMAB-TRBW
     Indication: ENDOCRINE OPHTHALMOPATHY
     Dosage: UNK
     Route: 042
     Dates: start: 20200817

REACTIONS (20)
  - Blood pressure increased [Unknown]
  - Hypoacusis [Unknown]
  - Weight decreased [Unknown]
  - Diabetes mellitus [Unknown]
  - Abdominal pain [Recovering/Resolving]
  - Abdominal pain [Recovering/Resolving]
  - Burning sensation [Unknown]
  - Blood pressure increased [Recovered/Resolved]
  - Product supply issue [Not Recovered/Not Resolved]
  - Dysgeusia [Recovered/Resolved]
  - Muscle spasms [Recovered/Resolved]
  - Malaise [Unknown]
  - Hypoacusis [Recovered/Resolved]
  - Dysgeusia [Unknown]
  - Myalgia [Recovering/Resolving]
  - Alopecia [Unknown]
  - Myalgia [Recovered/Resolved]
  - Visual impairment [Unknown]
  - Inappropriate schedule of product administration [Unknown]
  - Headache [Unknown]

NARRATIVE: CASE EVENT DATE: 20200817
